FAERS Safety Report 6959594-4 (Version None)
Quarter: 2010Q3

REPORT INFORMATION
  Report Type: 
  Country: None (occurrence: None)
  Receive Date: 20100830
  Receipt Date: 20100824
  Transmission Date: 20110219
  Serious: Yes (Death)
  Sender: FDA-Public Use
  Company Number: 2010080055

PATIENT
  Age: 45 Year
  Sex: Female

DRUGS (4)
  1. ONSOLIS [Suspect]
     Indication: CANCER PAIN
     Dosage: (EVERY 2 HOURS, UP TO 4 TIMES DAILY), BU,  (400 MCG, Q 6 HOURS, AS NEEDED), BU
     Route: 002
     Dates: start: 20091230, end: 20100221
  2. ONSOLIS [Suspect]
     Indication: CANCER PAIN
     Dosage: (EVERY 2 HOURS, UP TO 4 TIMES DAILY), BU,  (400 MCG, Q 6 HOURS, AS NEEDED), BU
     Route: 002
     Dates: start: 20100222
  3. OXXCONTIN (OXYCODONE) [Concomitant]
  4. OPANA 1R (OXYMORPHONE) [Concomitant]

REACTIONS (2)
  - BREAST CANCER METASTATIC [None]
  - MALIGNANT NEOPLASM PROGRESSION [None]
